FAERS Safety Report 5309951-7 (Version None)
Quarter: 2007Q2

REPORT INFORMATION
  Report Type: 
  Country: None (occurrence: None)
  Receive Date: 20070427
  Receipt Date: 20070418
  Transmission Date: 20071010
  Serious: Yes (Hospitalization)
  Sender: FDA-Public Use
  Company Number: 2007UW07442

PATIENT
  Age: 43 Year
  Sex: Male

DRUGS (3)
  1. SEROQUEL [Suspect]
     Indication: DEPRESSION
     Route: 048
  2. CYMBALTA [Suspect]
  3. DIAZEPAM [Suspect]

REACTIONS (2)
  - COMA [None]
  - MULTIPLE DRUG OVERDOSE [None]
